FAERS Safety Report 23833550 (Version 1)
Quarter: 2024Q2

REPORT INFORMATION
  Report Type: Spontaneous
  Country: US (occurrence: US)
  Receive Date: 20240508
  Receipt Date: 20240508
  Transmission Date: 20240716
  Serious: No
  Sender: FDA-Public Use
  Company Number: US-BEH-2024170368

PATIENT
  Age: 38 Year
  Sex: Female

DRUGS (4)
  1. HIZENTRA [Suspect]
     Active Substance: HUMAN IMMUNOGLOBULIN G
     Indication: Abnormal gene carrier
     Dosage: 32 G, QW
     Route: 058
     Dates: start: 2021
  2. SUMATRIPTAN [Suspect]
     Active Substance: SUMATRIPTAN
  3. PHENTERMINE [Concomitant]
     Active Substance: PHENTERMINE
  4. TOPAMAX [Concomitant]
     Active Substance: TOPIRAMATE

REACTIONS (2)
  - Migraine [Unknown]
  - Somnolence [Unknown]

NARRATIVE: CASE EVENT DATE: 20240301
